FAERS Safety Report 5565676-4 (Version None)
Quarter: 2007Q4

REPORT INFORMATION
  Report Type: 
  Country: None (occurrence: None)
  Receive Date: 20071218
  Receipt Date: 20071204
  Transmission Date: 20080405
  Serious: Yes (Other)
  Sender: FDA-Public Use
  Company Number: US-RANBAXY-2007RR-11469

PATIENT

DRUGS (6)
  1. CODEINE SUL TAB [Suspect]
     Indication: UPPER RESPIRATORY TRACT INFECTION
     Dosage: 700 MG, UNK
     Route: 064
  2. PROMETHAZINE [Concomitant]
     Indication: UPPER RESPIRATORY TRACT INFECTION
     Dosage: 6.25 MG/5ML, UNK
     Route: 064
  3. AMPICILLIN [Concomitant]
  4. GENTAMICIN [Concomitant]
  5. PHENOBARBITAL TAB [Concomitant]
     Dosage: 20 MG/KG, UNK
  6. PHENOBARBITAL TAB [Concomitant]
     Dosage: 6 MG/KG, QD

REACTIONS (7)
  - CAROTID ARTERY THROMBOSIS [None]
  - CEREBRAL INFARCTION [None]
  - CONVULSION NEONATAL [None]
  - DRUG EXPOSURE DURING PREGNANCY [None]
  - DRUG WITHDRAWAL SYNDROME NEONATAL [None]
  - HYPERTONIA NEONATAL [None]
  - POSTURING [None]
